FAERS Safety Report 4373727-8 (Version None)
Quarter: 2004Q2

REPORT INFORMATION
  Report Type: 
  Country: None (occurrence: None)
  Receive Date: 20040607
  Receipt Date: 20040607
  Transmission Date: 20050107
  Serious: Yes (Other)
  Sender: FDA-Public Use
  Company Number: None

PATIENT
  Age: 47 Year
  Sex: Female

DRUGS (1)
  1. TRIMETH/SULFA [Suspect]
     Indication: URINARY TRACT INFECTION
     Dosage: BID PO
     Route: 048
     Dates: start: 20040227, end: 20040228

REACTIONS (1)
  - PRURITUS [None]
